FAERS Safety Report 4622094-0 (Version None)
Quarter: 2005Q1

REPORT INFORMATION
  Report Type: 
  Country: None (occurrence: None)
  Receive Date: 20050329
  Receipt Date: 20050315
  Transmission Date: 20050727
  Serious: Yes (Hospitalization, Other)
  Sender: FDA-Public Use
  Company Number: 2005S1001373

PATIENT
  Age: 49 Year
  Sex: Male

DRUGS (5)
  1. EXTENDED PHENYTOIN SODIUM [Suspect]
     Indication: CONVULSION
     Dosage: 200 MG; QD; PO
     Route: 048
     Dates: end: 20050301
  2. EXTENDED PHENYTOIN SODIUM [Suspect]
     Dosage: 400 MG; HS; PO
     Route: 048
     Dates: end: 20050301
  3. PHENOBARBITAL [Concomitant]
  4. PHENOBARBITAL [Concomitant]
  5. LEVOTHYROXINE [Concomitant]

REACTIONS (4)
  - ANTICONVULSANT DRUG LEVEL DECREASED [None]
  - CONDITION AGGRAVATED [None]
  - GRAND MAL CONVULSION [None]
  - PHARMACEUTICAL PRODUCT COMPLAINT [None]
